FAERS Safety Report 5822181-5 (Version None)
Quarter: 2008Q3

REPORT INFORMATION
  Report Type: 
  Country: None (occurrence: None)
  Receive Date: 20080721
  Receipt Date: 20080707
  Transmission Date: 20090109
  Serious: Yes (Death, Hospitalization)
  Sender: FDA-Public Use
  Company Number: A-CH2006-11883

PATIENT
  Age: 53 Year
  Sex: Female

DRUGS (11)
  1. TRACLEER [Suspect]
     Indication: PULMONARY HYPERTENSION
     Dosage: 125 MG, BID, ORAL; 62.5 MG, BID, ORAL
     Route: 048
     Dates: start: 20010401, end: 20010501
  2. TRACLEER [Suspect]
     Indication: PULMONARY HYPERTENSION
     Dosage: 125 MG, BID, ORAL; 62.5 MG, BID, ORAL
     Route: 048
     Dates: start: 20010501, end: 20060325
  3. SILDENAFIL CITRATE [Suspect]
     Indication: RIGHT VENTRICULAR FAILURE
     Dosage: 25 MG, TID, ORAL
     Route: 048
     Dates: start: 20060120
  4. BUMETANIDE [Concomitant]
  5. QUININE (QUININE) [Concomitant]
  6. SPIRONONE MICROFINE (SPIRONOLACTONE) [Concomitant]
  7. IMMUNE GLOBULIN INTRAVENOUS (HUMAN) [Concomitant]
  8. LEVOTHYROXINE SODIUM [Concomitant]
  9. ZOPICLONE (ZOPICLONE) [Concomitant]
  10. ALTI-DILTIAZEM (DILTIAZEM HYDROCHLORIDE) [Concomitant]
  11. AMILORIDE HCL [Concomitant]

REACTIONS (31)
  - ABDOMINAL PAIN [None]
  - AORTIC ARTERIOSCLEROSIS [None]
  - ARTHRALGIA [None]
  - BLOOD IMMUNOGLOBULIN G INCREASED [None]
  - CARDIAC FAILURE [None]
  - CARDIAC MURMUR [None]
  - CREPITATIONS [None]
  - DIARRHOEA [None]
  - DRUG INEFFECTIVE [None]
  - EMPHYSEMA [None]
  - GENERAL PHYSICAL HEALTH DETERIORATION [None]
  - HAEMOGLOBIN INCREASED [None]
  - HEPATIC ATROPHY [None]
  - HEPATIC CONGESTION [None]
  - HEPATIC FAILURE [None]
  - HEPATOSPLENOMEGALY [None]
  - LIVER INJURY [None]
  - METABOLIC ACIDOSIS [None]
  - MULTI-ORGAN FAILURE [None]
  - MUSCULOSKELETAL PAIN [None]
  - PAIN [None]
  - PULMONARY EMBOLISM [None]
  - PULMONARY FIBROSIS [None]
  - PULMONARY HYPERTENSION [None]
  - RENAL FAILURE [None]
  - RENAL TUBULAR NECROSIS [None]
  - RIGHT VENTRICULAR FAILURE [None]
  - RIGHT VENTRICULAR HYPERTROPHY [None]
  - SCLERODERMA [None]
  - TENDERNESS [None]
  - VOMITING [None]
